FAERS Safety Report 21273895 (Version 1)
Quarter: 2022Q3

REPORT INFORMATION
  Report Type: Spontaneous
  Country: US (occurrence: None)
  Receive Date: 20220830
  Receipt Date: 20220830
  Transmission Date: 20221026
  Serious: Yes (Disabling)
  Sender: FDA-Public Use
  Company Number: None

PATIENT
  Age: 19 Year
  Sex: Female
  Weight: 70.31 kg

DRUGS (6)
  1. NEXPLANON [Suspect]
     Active Substance: ETONOGESTREL
  2. UNSPECIFIED INGREDIENT [Suspect]
     Active Substance: UNSPECIFIED INGREDIENT
  3. Nexplanon implant [Concomitant]
  4. escitalopram (10mg) [Concomitant]
  5. Buproprion (300mg) [Concomitant]
  6. Adderall (5 mg) [Concomitant]

REACTIONS (2)
  - Major depression [None]
  - Suicidal behaviour [None]

NARRATIVE: CASE EVENT DATE: 20211001
